FAERS Safety Report 17155970 (Version 1)
Quarter: 2019Q4

REPORT INFORMATION
  Report Type: Spontaneous
  Country: US (occurrence: US)
  Receive Date: 20191216
  Receipt Date: 20191216
  Transmission Date: 20200122
  Serious: No
  Sender: FDA-Public Use
  Company Number: NVSC2019US001172

PATIENT
  Age: 88 Year
  Sex: Female

DRUGS (2)
  1. PREDNISONE. [Suspect]
     Active Substance: PREDNISONE
     Indication: DEMENTIA ALZHEIMER^S TYPE
     Dosage: UNK UKN
     Route: 065
  2. RITUXIMAB. [Suspect]
     Active Substance: RITUXIMAB
     Indication: DEMENTIA ALZHEIMER^S TYPE
     Dosage: UNK UKN
     Route: 065

REACTIONS (1)
  - Drug ineffective for unapproved indication [Unknown]
